FAERS Safety Report 9257874 (Version 1)
Quarter: 2013Q2

REPORT INFORMATION
  Report Type: Report from Study
  Country: JP (occurrence: JP)
  Receive Date: 20130426
  Receipt Date: 20130426
  Transmission Date: 20140414
  Serious: Yes (Death)
  Sender: FDA-Public Use
  Company Number: JP-JNJFOC-20130312850

PATIENT
  Sex: Male

DRUGS (7)
  1. ONEDURO [Suspect]
     Indication: CANCER PAIN
     Route: 062
     Dates: start: 20121219, end: 20121220
  2. OXYFAST [Concomitant]
     Indication: CANCER PAIN
     Dosage: AS RESCUE DOSE
     Route: 065
     Dates: start: 20121219, end: 20121219
  3. ALOSENN [Concomitant]
     Indication: CONSTIPATION
     Route: 048
     Dates: end: 20121219
  4. LASIX [Concomitant]
     Indication: MALIGNANT ASCITES
     Route: 048
     Dates: end: 20121219
  5. ALDACTONE A [Concomitant]
     Indication: MALIGNANT ASCITES
     Route: 048
     Dates: end: 20121219
  6. ROPION [Concomitant]
     Indication: CANCER PAIN
     Route: 065
     Dates: start: 20121219, end: 20121220
  7. PREDONINE [Concomitant]
     Indication: CANCER PAIN
     Route: 065
     Dates: start: 20121208, end: 20121220

REACTIONS (2)
  - Colon cancer [Fatal]
  - Drug intolerance [Unknown]
